FAERS Safety Report 4662754-9 (Version None)
Quarter: 2005Q2

REPORT INFORMATION
  Report Type: 
  Country: None (occurrence: None)
  Receive Date: 20050512
  Receipt Date: 20050426
  Transmission Date: 20051028
  Serious: No
  Sender: FDA-Public Use
  Company Number: GBS050417225

PATIENT
  Age: 13 Year
  Sex: Male

DRUGS (3)
  1. STRATTERA [Suspect]
     Indication: ABNORMAL BEHAVIOUR
     Dosage: 25 MG
     Dates: start: 20040716
  2. STRATTERA [Suspect]
     Indication: ATTENTION DEFICIT/HYPERACTIVITY DISORDER
     Dosage: 25 MG
     Dates: start: 20040716
  3. RITALIN [Concomitant]

REACTIONS (3)
  - BLOOD ALKALINE PHOSPHATASE INCREASED [None]
  - DECREASED APPETITE [None]
  - SLEEP DISORDER [None]
